FAERS Safety Report 7852826 (Version 7)
Quarter: 2013Q1

REPORT INFORMATION
  Report Type: Report from Study
  Country: US (occurrence: US)
  Receive Date: 20110311
  Receipt Date: 20130124
  Transmission Date: 20140127
  Serious: Yes (Other)
  Sender: FDA-Public Use
  Company Number: US-ABBOTT-11P-163-0710429-00

PATIENT
  Sex: Female
  Weight: 97.16 kg

DRUGS (3)
  1. HUMIRA [Suspect]
     Dates: start: 20090612, end: 20110602
  2. ENTOCORT [Suspect]
     Indication: PRODUCT USED FOR UNKNOWN INDICATION
  3. LEVOTHYROXINE [Concomitant]
     Indication: PRODUCT USED FOR UNKNOWN INDICATION

REACTIONS (5)
  - Intracranial pressure increased [Recovered/Resolved]
  - Papilloedema [Unknown]
  - Neck pain [Not Recovered/Not Resolved]
  - Vision blurred [Unknown]
  - Pseudomonas infection [Unknown]
